FAERS Safety Report 6819596-5 (Version None)
Quarter: 2010Q3

REPORT INFORMATION
  Report Type: 
  Country: None (occurrence: None)
  Receive Date: 20100701
  Receipt Date: 20091030
  Transmission Date: 20110219
  Serious: No
  Sender: FDA-Public Use
  Company Number: US-TEVA-213889USA

PATIENT
  Sex: Male
  Weight: 81.72 kg

DRUGS (4)
  1. AZILECT [Suspect]
     Route: 048
     Dates: start: 20091016
  2. ROPINIROLE HYDROCHLORIDE [Concomitant]
  3. FINASTERIDE [Concomitant]
  4. ST. JOHN'S WORT [Concomitant]

REACTIONS (1)
  - ANXIETY [None]
